FAERS Safety Report 12124466 (Version 1)
Quarter: 2016Q1

REPORT INFORMATION
  Report Type: Spontaneous
  Country: US (occurrence: None)
  Receive Date: 20160226
  Receipt Date: 20160226
  Transmission Date: 20160526
  Serious: Yes (Other)
  Sender: FDA-Public Use
  Company Number: None

PATIENT
  Age: 33 Year
  Sex: Female

DRUGS (1)
  1. COPAXONE [Suspect]
     Active Substance: GLATIRAMER ACETATE
     Indication: MULTIPLE SCLEROSIS
     Route: 058
     Dates: start: 20151112, end: 20160223

REACTIONS (6)
  - Injection site erythema [None]
  - Injection site haemorrhage [None]
  - Injection site bruising [None]
  - Loss of consciousness [None]
  - Pain [None]
  - Hot flush [None]

NARRATIVE: CASE EVENT DATE: 20160223
